FAERS Safety Report 9732773 (Version 1)
Quarter: 2013Q4

REPORT INFORMATION
  Report Type: Spontaneous
  Country: US (occurrence: None)
  Receive Date: 20131203
  Receipt Date: 20131203
  Transmission Date: 20140711
  Serious: Yes (Death)
  Sender: FDA-Public Use
  Company Number: US-ALKEM-000333

PATIENT
  Age: 23 Year
  Sex: Female

DRUGS (4)
  1. GABAPENTIN (GABAPENTIN) [Suspect]
     Route: 048
  2. TRAZADONE (TRAZODONE) [Suspect]
     Route: 048
  3. OXYCODONE (OXYCODONE) [Suspect]
     Route: 048
  4. ALPRAZOLAM (ALPRAZOLAM) [Suspect]
     Route: 048

REACTIONS (3)
  - Cardio-respiratory arrest [None]
  - Completed suicide [None]
  - Exposure via ingestion [None]
